FAERS Safety Report 8067429-4 (Version None)
Quarter: 2012Q1

REPORT INFORMATION
  Report Type: 
  Country: None (occurrence: None)
  Receive Date: 20120124
  Receipt Date: 20120118
  Transmission Date: 20120608
  Serious: Yes (Other)
  Sender: FDA-Public Use
  Company Number: US-PFIZER INC-2012015024

PATIENT
  Sex: Female

DRUGS (3)
  1. LYRICA [Suspect]
     Indication: PAIN
  2. LYRICA [Suspect]
     Indication: FIBROMYALGIA
     Dosage: 50 MG, 3X/DAY
     Route: 048
     Dates: start: 20110101
  3. NEURONTIN [Concomitant]
     Indication: PAIN
     Dosage: 900 MG, 3X/DAY
     Route: 048
     Dates: start: 20000101

REACTIONS (2)
  - EYE SWELLING [None]
  - EYE PAIN [None]
